FAERS Safety Report 5733224-1 (Version None)
Quarter: 2008Q2

REPORT INFORMATION
  Report Type: 
  Country: None (occurrence: None)
  Receive Date: 20080509
  Receipt Date: 20080430
  Transmission Date: 20081010
  Serious: Yes (Hospitalization, Other)
  Sender: FDA-Public Use
  Company Number: CA-ELI_LILLY_AND_COMPANY-CA200805000039

PATIENT
  Age: 63 Year
  Sex: Male

DRUGS (13)
  1. FORTEO [Suspect]
     Indication: OSTEOPOROSIS
     Dosage: 20 UG, DAILY (1/D)
     Route: 058
     Dates: start: 20080222
  2. NEXIUM [Concomitant]
  3. ENBREL [Concomitant]
  4. METHOTREXATE [Concomitant]
  5. PREDNISONE TAB [Concomitant]
  6. EFFEXOR [Concomitant]
  7. OMEGA-3 [Concomitant]
  8. VITAMIN B COMPLEX CAP [Concomitant]
  9. VITAMIN D [Concomitant]
  10. CALCIUM                                 /N/A/ [Concomitant]
  11. FOLIC ACID [Concomitant]
  12. CHROMIUM [Concomitant]
  13. HYDROCHLOROTHIAZIDE [Concomitant]

REACTIONS (5)
  - ABDOMINAL PAIN UPPER [None]
  - ANGINA PECTORIS [None]
  - CORONARY ARTERY OCCLUSION [None]
  - CORONARY ARTERY STENOSIS [None]
  - MYOCARDIAL INFARCTION [None]
